FAERS Safety Report 4766248-1 (Version None)
Quarter: 2005Q3

REPORT INFORMATION
  Report Type: 
  Country: None (occurrence: None)
  Receive Date: 20050906
  Receipt Date: 20050819
  Transmission Date: 20060218
  Serious: Yes (Death, Other)
  Sender: FDA-Public Use
  Company Number: USA0508106041

PATIENT
  Age: 54 Year
  Sex: Male

DRUGS (1)
  1. FORTEO [Suspect]
     Dates: start: 20031001, end: 20050401

REACTIONS (2)
  - MENINGITIS CRYPTOCOCCAL [None]
  - PULMONARY OEDEMA [None]
